FAERS Safety Report 24139428 (Version 1)
Quarter: 2024Q3

REPORT INFORMATION
  Report Type: Spontaneous
  Country: JP (occurrence: JP)
  Receive Date: 20240726
  Receipt Date: 20240726
  Transmission Date: 20241016
  Serious: Yes (Hospitalization, Other)
  Sender: CHEPLAPHARM
  Company Number: JP-CLGN-JP-CLI-2024-010430

PATIENT
  Age: 72 Year
  Sex: Male

DRUGS (1)
  1. HYDROXYUREA [Suspect]
     Active Substance: HYDROXYUREA
     Indication: Chronic myeloid leukaemia
     Route: 048

REACTIONS (5)
  - Shock haemorrhagic [Recovering/Resolving]
  - Seizure [Recovering/Resolving]
  - Respiratory arrest [Recovering/Resolving]
  - Acquired Von Willebrand^s disease [Recovering/Resolving]
  - Platelet count increased [Recovering/Resolving]
